FAERS Safety Report 8236117 (Version 15)
Quarter: 2014Q2

REPORT INFORMATION
  Report Type: Spontaneous
  Country: US (occurrence: US)
  Receive Date: 20111108
  Receipt Date: 20140613
  Transmission Date: 20141212
  Serious: Yes (Hospitalization, Other)
  Sender: FDA-Public Use
  Company Number: US-GLAXOSMITHKLINE-A0949454A

PATIENT
  Age: 57 Year
  Sex: Female
  Weight: 88 kg

DRUGS (8)
  1. FLOLAN [Suspect]
     Indication: PULMONARY ARTERIAL HYPERTENSION
     Dosage: 50.5NGKM CONTINUOUS
     Route: 042
     Dates: start: 20090820
  2. REVATIO [Concomitant]
  3. POTASSIUM [Concomitant]
  4. SPIRONOLACTONE [Concomitant]
  5. WARFARIN [Concomitant]
  6. ALBUTEROL [Concomitant]
  7. FUROSEMIDE [Concomitant]
  8. REMODULIN [Concomitant]

REACTIONS (9)
  - Clostridium difficile infection [Unknown]
  - Staphylococcal infection [Unknown]
  - Device related infection [Recovered/Resolved]
  - Diarrhoea [Recovered/Resolved]
  - Catheter site swelling [Recovered/Resolved]
  - Catheter site discharge [Recovered/Resolved]
  - Back pain [Unknown]
  - Investigation [Unknown]
  - Therapeutic procedure [Recovered/Resolved]
